FAERS Safety Report 17766207 (Version 6)
Quarter: 2020Q4

REPORT INFORMATION
  Report Type: Report from Study
  Country: FR (occurrence: FR)
  Receive Date: 20200511
  Receipt Date: 20201116
  Transmission Date: 20210113
  Serious: Yes (Death, Hospitalization)
  Sender: FDA-Public Use
  Company Number: FR-EISAI MEDICAL RESEARCH-EC-2020-074409

PATIENT
  Age: 72 Year
  Sex: Female
  Weight: 57 kg

DRUGS (14)
  1. LEVOTHYROX [Concomitant]
     Active Substance: LEVOTHYROXINE
     Dates: start: 20200409, end: 20200429
  2. TITANOREINE [Concomitant]
     Active Substance: CARRAGEENAN\TITANIUM\ZINC
     Dates: start: 20200409, end: 20200509
  3. LENVATINIB [Suspect]
     Active Substance: LENVATINIB
     Indication: ENDOMETRIAL CANCER
     Route: 048
     Dates: start: 20200116, end: 20200408
  4. PEMBROLIZUMAB. [Suspect]
     Active Substance: PEMBROLIZUMAB
     Indication: ENDOMETRIAL CANCER
     Route: 041
     Dates: start: 20200116, end: 20200319
  5. CHLORHEXIDINE GLUCONATE (+) SODIUM BICARBONATE (+) ZINC GLUCONATE [Concomitant]
     Dates: start: 20200409, end: 20200509
  6. SODIUM CHLORIDE. [Concomitant]
     Active Substance: SODIUM CHLORIDE
     Dates: start: 20200502, end: 20200502
  7. PEMBROLIZUMAB. [Suspect]
     Active Substance: PEMBROLIZUMAB
     Route: 041
     Dates: start: 20200409, end: 20200409
  8. LENVATINIB [Suspect]
     Active Substance: LENVATINIB
     Route: 048
     Dates: start: 20200409, end: 20200409
  9. VALSARTAN. [Concomitant]
     Active Substance: VALSARTAN
     Dates: start: 20200220
  10. DIETARY SUPPLEMENT [Concomitant]
     Active Substance: DIETARY SUPPLEMENT
     Dates: start: 20200130
  11. ESOMEPRAZOLE. [Concomitant]
     Active Substance: ESOMEPRAZOLE MAGNESIUM
     Dates: start: 20200319, end: 20200501
  12. MAGNESIUM (UNSPECIFIED) [Concomitant]
     Active Substance: MAGNESIUM
     Dates: start: 20200409, end: 20200509
  13. PRIMPERAN [Concomitant]
     Active Substance: METOCLOPRAMIDE HYDROCHLORIDE
     Dates: start: 20200409, end: 20200509
  14. ACETAMINOPHEN. [Concomitant]
     Active Substance: ACETAMINOPHEN
     Dates: start: 20200409

REACTIONS (1)
  - General physical health deterioration [Recovered/Resolved]

NARRATIVE: CASE EVENT DATE: 20200430
